FAERS Safety Report 4931015-2 (Version None)
Quarter: 2006Q1

REPORT INFORMATION
  Report Type: 
  Country: None (occurrence: None)
  Receive Date: 20060227
  Receipt Date: 20060214
  Transmission Date: 20060701
  Serious: Yes (Other)
  Sender: FDA-Public Use
  Company Number: 2006-02-0327

PATIENT
  Age: 76 Year
  Sex: Female

DRUGS (2)
  1. CLARITIN [Suspect]
     Indication: HYPERSENSITIVITY
     Dosage: 10 MG ORAL
     Route: 048
     Dates: start: 20060124, end: 20060125
  2. MUCODYNE TABLETS [Suspect]
     Indication: SINUSITIS
     Dosage: 1000 MG ORAL
     Route: 048
     Dates: start: 20060124, end: 20060125

REACTIONS (2)
  - BACK PAIN [None]
  - SPINAL OSTEOARTHRITIS [None]
